FAERS Safety Report 6338416-9 (Version None)
Quarter: 2009Q3

REPORT INFORMATION
  Report Type: 
  Country: None (occurrence: None)
  Receive Date: 20090902
  Receipt Date: 20090826
  Transmission Date: 20100115
  Serious: Yes (Congenital Anomaly)
  Sender: FDA-Public Use
  Company Number: US-MERCK-0908USA03177B1

PATIENT

DRUGS (1)
  1. PROPECIA [Suspect]
     Route: 064

REACTIONS (1)
  - CONGENITAL ANOMALY [None]
